FAERS Safety Report 7730020-0 (Version None)
Quarter: 2011Q3

REPORT INFORMATION
  Report Type: 
  Country: None (occurrence: None)
  Receive Date: 20110906
  Receipt Date: 20110824
  Transmission Date: 20111222
  Serious: Yes (Hospitalization, Other)
  Sender: FDA-Public Use
  Company Number: PHHY2011CA74356

PATIENT
  Sex: Male

DRUGS (6)
  1. CLOZAPINE [Suspect]
     Indication: SCHIZOPHRENIA
     Dates: start: 20110813
  2. CLOZAPINE [Suspect]
     Dosage: 162.5 MG, QHS
     Route: 048
     Dates: start: 20081126
  3. CLOMIPRAMINE HCL [Concomitant]
     Dosage: 275 MG, QHS
  4. OLANZAPINE [Concomitant]
     Indication: SCHIZOPHRENIA
     Dosage: 15 MG, QHS
     Route: 048
     Dates: start: 20080801
  5. CLOMIPRAMINE HCL [Concomitant]
     Indication: OBSESSIVE-COMPULSIVE DISORDER
     Dosage: 300 MG, QHS
     Route: 048
     Dates: start: 20070211
  6. ANTIDEPRESSANTS [Concomitant]

REACTIONS (22)
  - CONGESTIVE CARDIOMYOPATHY [None]
  - EJECTION FRACTION DECREASED [None]
  - QRS AXIS ABNORMAL [None]
  - CONDUCTION DISORDER [None]
  - MITRAL VALVE INCOMPETENCE [None]
  - GALLOP RHYTHM PRESENT [None]
  - PLEURAL EFFUSION [None]
  - DYSPNOEA [None]
  - LEFT VENTRICULAR DYSFUNCTION [None]
  - SINUS TACHYCARDIA [None]
  - OROPHARYNGEAL PAIN [None]
  - BRAIN NATRIURETIC PEPTIDE INCREASED [None]
  - CENTRAL VENOUS PRESSURE INCREASED [None]
  - ELECTROCARDIOGRAM ST-T CHANGE [None]
  - PERICARDIAL EFFUSION [None]
  - LEFT ATRIAL DILATATION [None]
  - RESPIRATORY TRACT CONGESTION [None]
  - HEART SOUNDS ABNORMAL [None]
  - CHEST PAIN [None]
  - CARDIOMEGALY [None]
  - DILATATION VENTRICULAR [None]
  - MALAISE [None]
